FAERS Safety Report 7967660-X (Version None)
Quarter: 2011Q4

REPORT INFORMATION
  Report Type: 
  Country: None (occurrence: None)
  Receive Date: 20111209
  Receipt Date: 20111201
  Transmission Date: 20120403
  Serious: No
  Sender: FDA-Public Use
  Company Number: ZA-ABBOTT-11P-143-0880152-00

PATIENT
  Sex: Female

DRUGS (11)
  1. LEVOTHYROXINE SODIUM [Concomitant]
     Dosage: 3 TIMES A WEEK
     Route: 048
  2. HUMIRA [Suspect]
     Indication: RHEUMATOID ARTHRITIS
     Route: 058
     Dates: start: 20101201
  3. PREDNISONE TAB [Concomitant]
     Indication: RHEUMATOID ARTHRITIS
     Route: 048
  4. LEVOTHYROXINE SODIUM [Concomitant]
     Route: 048
  5. CELESTONE [Suspect]
     Indication: PROPHYLAXIS
  6. METHOTREXATE [Concomitant]
     Indication: RHEUMATOID ARTHRITIS
     Dosage: 6 TABLETS WEEKLY
     Route: 048
     Dates: start: 20090101, end: 20100101
  7. LEVOTHYROXINE SODIUM [Concomitant]
     Route: 048
  8. CELESTONE [Suspect]
     Indication: SKIN REACTION
     Route: 048
     Dates: end: 20111201
  9. LEVOTHYROXINE SODIUM [Concomitant]
     Indication: HYPOTHYROIDISM
     Dosage: 4 TIMES A WEEK
     Route: 048
  10. UNKNOWN ANTIDEPRESSANTS [Concomitant]
     Indication: DEPRESSION
     Route: 065
  11. UNKNOWN ANALGESICS [Concomitant]
     Indication: PAIN
     Route: 065

REACTIONS (1)
  - PSYCHOTIC DISORDER [None]
